FAERS Safety Report 8814856 (Version 1)
Quarter: 2012Q4

REPORT INFORMATION
  Report Type: Report from Study
  Country: GR (occurrence: GR)
  Receive Date: 20120928
  Receipt Date: 20120928
  Transmission Date: 20130627
  Serious: Yes (Hospitalization)
  Sender: FDA-Public Use
  Company Number: GR-009507513-1209GRC010079

PATIENT
  Age: 52 Year
  Sex: Male

DRUGS (4)
  1. PEGINTRON [Suspect]
     Indication: HEPATITIS C
     Dosage: 80 microgram per week
     Route: 030
     Dates: start: 20120622
  2. VICTRELIS [Suspect]
     Indication: HEPATITIS C
     Dosage: 800 mg, tid
     Route: 048
     Dates: start: 20120622
  3. REBETOL [Concomitant]
     Indication: HEPATITIS C
     Dosage: 1000 mg, qd
  4. ZOLOFT [Concomitant]
     Indication: ANXIETY DISORDER
     Dosage: 50 mg, qd

REACTIONS (1)
  - Febrile neutropenia [Unknown]
